FAERS Safety Report 5710078-0 (Version None)
Quarter: 2008Q2

REPORT INFORMATION
  Report Type: 
  Country: None (occurrence: None)
  Receive Date: 20080418
  Receipt Date: 20070906
  Transmission Date: 20081010
  Serious: No
  Sender: FDA-Public Use
  Company Number: US-ASTRAZENECA-2007UW21118

PATIENT
  Age: 70 Year
  Sex: Male
  Weight: 85.7 kg

DRUGS (6)
  1. METOPROLOL SUCCINATE [Suspect]
     Indication: HYPERTENSION
     Route: 048
     Dates: start: 20070903
  2. TEGRETOL [Concomitant]
  3. ASPIRIN [Concomitant]
  4. PREVACID [Concomitant]
  5. MTV [Concomitant]
  6. LIPITOR [Concomitant]

REACTIONS (3)
  - ABDOMINAL DISTENSION [None]
  - DEPRESSION [None]
  - HYPERTENSION [None]
